FAERS Safety Report 12085788 (Version 3)
Quarter: 2018Q2

REPORT INFORMATION
  Report Type: Spontaneous
  Country: US (occurrence: US)
  Receive Date: 20160217
  Receipt Date: 20180403
  Transmission Date: 20180711
  Serious: Yes (Hospitalization, Other)
  Sender: FDA-Public Use
  Company Number: US-UNITED THERAPEUTICS-UNT-2016-002194

PATIENT
  Age: 59 Year
  Sex: Female
  Weight: 55.78 kg

DRUGS (2)
  1. REVATIO [Concomitant]
     Active Substance: SILDENAFIL CITRATE
     Indication: PRODUCT USED FOR UNKNOWN INDICATION
     Route: 065
  2. REMODULIN [Suspect]
     Active Substance: TREPROSTINIL
     Indication: PULMONARY HYPERTENSION
     Dosage: 0.026 ?G/KG, CONTINUING
     Route: 041
     Dates: start: 20141031, end: 20160216

REACTIONS (2)
  - Pulmonary arterial hypertension [Unknown]
  - Renal failure [Unknown]

NARRATIVE: CASE EVENT DATE: 20160210
